FAERS Safety Report 7388757-1 (Version None)
Quarter: 2011Q2

REPORT INFORMATION
  Report Type: 
  Country: None (occurrence: None)
  Receive Date: 20110401
  Receipt Date: 20110331
  Transmission Date: 20111010
  Serious: Yes (Hospitalization)
  Sender: FDA-Public Use
  Company Number: JP-JNJFOC-20100700830

PATIENT
  Sex: Male

DRUGS (9)
  1. URSO 250 [Concomitant]
     Indication: LIVER DISORDER
     Route: 048
  2. EPIVIR [Concomitant]
     Indication: HIV INFECTION
     Route: 048
  3. CROSS EIGHT M [Concomitant]
     Indication: FACTOR VIII DEFICIENCY
     Route: 065
  4. INTELENCE [Suspect]
     Indication: HIV INFECTION
     Route: 048
  5. KALETRA [Suspect]
     Indication: HIV INFECTION
     Route: 048
  6. EPZICOM [Concomitant]
     Indication: HIV INFECTION
     Route: 048
  7. VIREAD [Concomitant]
     Indication: HIV INFECTION
     Route: 048
  8. PEGINTERFERON ALFA-2A [Concomitant]
     Indication: HEPATITIS
     Route: 065
  9. ISENTRESS [Concomitant]
     Indication: HIV INFECTION
     Route: 048

REACTIONS (3)
  - LIVER DISORDER [None]
  - HAEMORRHAGIC DIATHESIS [None]
  - HYPERLIPIDAEMIA [None]
